FAERS Safety Report 22079285 (Version 2)
Quarter: 2023Q2

REPORT INFORMATION
  Report Type: Spontaneous
  Country: US (occurrence: US)
  Receive Date: 20230309
  Receipt Date: 20230503
  Transmission Date: 20230722
  Serious: No
  Sender: FDA-Public Use
  Company Number: US-HORIZON THERAPEUTICS-HZN-2022-005503

PATIENT

DRUGS (2)
  1. RAVICTI [Suspect]
     Active Substance: GLYCEROL PHENYLBUTYRATE
     Indication: Ornithine transcarbamoylase deficiency
     Dosage: FIRST DOSE
     Route: 065
  2. BUPHENYL [Suspect]
     Active Substance: SODIUM PHENYLBUTYRATE
     Indication: Ornithine transcarbamoylase deficiency
     Dosage: FIRST DOSE
     Route: 065

REACTIONS (5)
  - Mental status changes [Unknown]
  - Confusional state [Unknown]
  - Product temperature excursion issue [Unknown]
  - Carnitine abnormal [Unknown]
  - Abdominal discomfort [Unknown]
